FAERS Safety Report 23273509 (Version 2)
Quarter: 2023Q4

REPORT INFORMATION
  Report Type: Spontaneous
  Country: CA (occurrence: CA)
  Receive Date: 20231207
  Receipt Date: 20231215
  Transmission Date: 20240109
  Serious: Yes (Death, Life-Threatening, Hospitalization, Disabling, Other)
  Sender: FDA-Public Use
  Company Number: CA-002147023- NVSC2023CA238866

PATIENT
  Age: 43 Year
  Sex: Female
  Weight: 97 kg

DRUGS (10)
  1. ADALIMUMAB [Suspect]
     Active Substance: ADALIMUMAB\ISOPROPYL ALCOHOL
     Indication: Rheumatoid arthritis
     Dosage: 40 MG
     Route: 058
  2. ALENDRONATE SODIUM [Suspect]
     Active Substance: ALENDRONATE SODIUM
     Indication: Product used for unknown indication
     Dosage: UNK
     Route: 016
  3. COSENTYX [Suspect]
     Active Substance: SECUKINUMAB
     Indication: Psoriatic arthropathy
     Dosage: UNK
     Route: 042
  4. DICLOFENAC SODIUM [Suspect]
     Active Substance: DICLOFENAC\DICLOFENAC SODIUM
     Indication: Product used for unknown indication
     Dosage: UNK
     Route: 065
  5. ERELZI [Suspect]
     Active Substance: ETANERCEPT-SZZS
     Indication: Rheumatoid arthritis
     Dosage: UNK
     Route: 058
  6. FOLIC ACID [Suspect]
     Active Substance: FOLIC ACID
     Indication: Rheumatoid arthritis
     Dosage: 1 MG
     Route: 065
  7. LEFLUNOMIDE [Suspect]
     Active Substance: LEFLUNOMIDE
     Indication: Rheumatoid arthritis
     Dosage: UNK
     Route: 065
  8. METHOTREXATE SODIUM [Suspect]
     Active Substance: METHOTREXATE SODIUM
     Indication: Rheumatoid arthritis
     Dosage: UNK
     Route: 016
  9. RITUXIMAB [Suspect]
     Active Substance: RITUXIMAB
     Indication: Rheumatoid arthritis
     Dosage: UNK
     Route: 042
  10. SECUKINUMAB [Suspect]
     Active Substance: SECUKINUMAB
     Indication: Psoriatic arthropathy
     Dosage: UNK
     Route: 042

REACTIONS (44)
  - Migraine [Fatal]
  - Muscle injury [Fatal]
  - Muscular weakness [Fatal]
  - Muscle spasms [Fatal]
  - Nasopharyngitis [Fatal]
  - Night sweats [Fatal]
  - Obesity [Fatal]
  - Osteoarthritis [Fatal]
  - Pain [Fatal]
  - Psoriatic arthropathy [Fatal]
  - Paraesthesia [Fatal]
  - Peripheral venous disease [Fatal]
  - Pyrexia [Fatal]
  - Rheumatic fever [Fatal]
  - Road traffic accident [Fatal]
  - Systemic lupus erythematosus [Fatal]
  - Sciatica [Fatal]
  - Sleep disorder [Fatal]
  - Sleep disorder due to general medical condition, insomnia type [Fatal]
  - Stomatitis [Fatal]
  - Swollen joint count increased [Fatal]
  - Type 2 diabetes mellitus [Fatal]
  - Urticaria [Fatal]
  - Weight increased [Fatal]
  - Weight decreased [Fatal]
  - Rheumatoid arthritis [Fatal]
  - Swelling [Fatal]
  - Off label use [Fatal]
  - Abdominal pain upper [Not Recovered/Not Resolved]
  - Adverse event [Not Recovered/Not Resolved]
  - Blister [Not Recovered/Not Resolved]
  - Breast cancer stage III [Not Recovered/Not Resolved]
  - Chest pain [Not Recovered/Not Resolved]
  - Colitis ulcerative [Not Recovered/Not Resolved]
  - Diarrhoea [Not Recovered/Not Resolved]
  - Drug intolerance [Not Recovered/Not Resolved]
  - Feeling hot [Not Recovered/Not Resolved]
  - Frequent bowel movements [Not Recovered/Not Resolved]
  - Hypoaesthesia [Not Recovered/Not Resolved]
  - Insomnia [Not Recovered/Not Resolved]
  - Joint range of motion decreased [Not Recovered/Not Resolved]
  - Laboratory test abnormal [Not Recovered/Not Resolved]
  - Inappropriate schedule of product administration [Not Recovered/Not Resolved]
  - Intentional product misuse [Not Recovered/Not Resolved]
